FAERS Safety Report 7527337-1 (Version None)
Quarter: 2011Q2

REPORT INFORMATION
  Report Type: 
  Country: None (occurrence: None)
  Receive Date: 20110607
  Receipt Date: 20110524
  Transmission Date: 20111010
  Serious: Yes (Hospitalization, Other)
  Sender: FDA-Public Use
  Company Number: BR-BAYER-200823304LA

PATIENT
  Age: 47 Year
  Sex: Female

DRUGS (41)
  1. TIZANIDINE HCL [Concomitant]
     Indication: RESTLESS LEGS SYNDROME
     Route: 048
  2. UNCODEABLE ^UNCLASSIFIABLE^ [Concomitant]
     Dosage: 1 DF, BID
     Route: 048
     Dates: start: 19980101, end: 20100315
  3. VITERGAN MASTER [Concomitant]
     Indication: SUPPLEMENTATION THERAPY
     Dosage: 1 DF, QD
     Route: 048
     Dates: start: 20090101
  4. HIRUDOID [Concomitant]
     Indication: PROPHYLAXIS
     Dosage: UNK
     Route: 061
     Dates: start: 20080101
  5. BETASERON [Suspect]
     Dosage: BETAJECT
     Route: 058
     Dates: start: 20090907, end: 20100101
  6. BETASERON [Suspect]
     Dosage: BETAJECT
     Route: 058
     Dates: start: 20100101
  7. PAROXETINE [Concomitant]
     Indication: ANXIETY
     Route: 048
  8. CITALOPRAM HYDROBROMIDE [Concomitant]
     Indication: CARDIAC STRESS TEST
     Route: 065
     Dates: start: 20081001, end: 20081001
  9. NIMESULIDE [Concomitant]
     Indication: ARTHRITIS
  10. SIMVASTATIN [Concomitant]
     Indication: HYPERCHOLESTEROLAEMIA
     Dosage: UNK
     Dates: start: 20081001
  11. GALENIC FORMULATION [Concomitant]
     Indication: MYALGIA
  12. PANTOPRAZOLE [Concomitant]
     Indication: PROPHYLAXIS
     Route: 048
     Dates: start: 20080101
  13. CITALOPRAM HYDROBROMIDE [Concomitant]
     Indication: DEPRESSION
     Dosage: 1 DF, QD
     Route: 048
     Dates: start: 20110401
  14. NIMESULIDE [Concomitant]
     Indication: MYALGIA
     Dosage: 1 DF, QD
     Dates: start: 20101101
  15. CITALOPRAM HYDROBROMIDE [Concomitant]
     Indication: HYPOAESTHESIA
  16. BETASERON [Suspect]
     Indication: RELAPSING-REMITTING MULTIPLE SCLEROSIS
     Dosage: BETAJECT
     Route: 058
     Dates: start: 20080617, end: 20081020
  17. OMEPRAZOLE [Concomitant]
     Indication: PROPHYLAXIS
     Dosage: 1 DF, BID
     Route: 048
     Dates: start: 20000101
  18. GALENIC FORMULATION [Concomitant]
     Indication: ARTHRITIS
     Dosage: 1 DF, QD
     Route: 048
     Dates: start: 20100401
  19. ALPRAZOLAM [Concomitant]
     Indication: SLEEP DISORDER
     Route: 048
     Dates: start: 20080101, end: 20100301
  20. ALPRAZOLAM [Concomitant]
     Dosage: 2.5 TABLETS A DAY WHEN NERVOUS
  21. BETASERON [Suspect]
     Dosage: BETAJECT
     Route: 058
     Dates: start: 20081201, end: 20090901
  22. FLUNITRAZEPAM [Concomitant]
     Indication: INSOMNIA
     Route: 048
  23. OMEPRAZOLE [Concomitant]
     Dosage: 2 DF, QD
     Route: 048
     Dates: start: 20000101
  24. ATENOLOL [Concomitant]
     Indication: HYPERTENSION
     Dosage: 1 DF, QD
     Route: 048
     Dates: start: 20070101, end: 20080101
  25. AMANTADINE HCL [Concomitant]
     Indication: FATIGUE
     Route: 048
     Dates: start: 20080101
  26. METHOTREXATE [Concomitant]
     Indication: ARTHRITIS
  27. CITALOPRAM HYDROBROMIDE [Concomitant]
     Indication: ANTICOAGULANT THERAPY
     Route: 065
     Dates: start: 20081001, end: 20081001
  28. DORIL [Concomitant]
     Indication: HEADACHE
     Dosage: 1 DF, PRN
     Route: 048
  29. DORFLEX [Concomitant]
     Indication: MYALGIA
     Dosage: 1 DF, PRN
     Route: 048
     Dates: start: 19810101
  30. ACETAMINOPHEN [Concomitant]
     Indication: PAIN
     Dosage: 1 DF, PRN
     Route: 048
     Dates: start: 20050101
  31. CITALOPRAM HYDROBROMIDE [Concomitant]
     Indication: PAIN
     Dosage: UNK
     Route: 042
     Dates: start: 20000101
  32. METHOTREXATE [Concomitant]
     Indication: OSTEOARTHRITIS
     Route: 048
     Dates: start: 19980101
  33. ALPRAZOLAM [Concomitant]
     Indication: ANXIETY
     Dosage: 1 DF, QD (2MG)
     Route: 048
     Dates: start: 20070101
  34. ALPRAZOLAM [Concomitant]
     Dosage: 1/2 TAB IN THE MORNING, 1/2 TAB IN THE AFTERNOON AND 1 TAB AT NIGHT
     Route: 048
     Dates: start: 20100301
  35. NIMESULIDE [Concomitant]
     Indication: OSTEOARTHRITIS
  36. CAPTOPRIL [Concomitant]
     Indication: HYPERTENSION
     Dosage: 1 DF, QD
     Route: 048
     Dates: start: 20070101, end: 20080101
  37. SIMVASTATIN [Concomitant]
     Dosage: 1 DF, QD
     Dates: start: 20101001
  38. GALENIC FORMULATION [Concomitant]
     Indication: OSTEOARTHRITIS
     Dosage: 1 DF, BID
     Route: 048
     Dates: start: 19980101, end: 20100315
  39. CITALOPRAM HYDROBROMIDE [Concomitant]
     Indication: CARDIAC DISORDER
     Route: 065
  40. ASPIRIN [Concomitant]
     Indication: ANTIPLATELET THERAPY
     Dosage: 2 TAB A DAY
     Route: 048
     Dates: start: 20081001
  41. PRISTIQ [Concomitant]
     Indication: DEPRESSION
     Dosage: 1 DF, QD
     Route: 048
     Dates: start: 20100401, end: 20110401

REACTIONS (44)
  - CHEST PAIN [None]
  - BLOOD PRESSURE INCREASED [None]
  - ARTHRALGIA [None]
  - VIRAL INFECTION [None]
  - WEIGHT DECREASED [None]
  - UNEVALUABLE EVENT [None]
  - INJECTION SITE ULCER [None]
  - ARRHYTHMIA [None]
  - SILENT MYOCARDIAL INFARCTION [None]
  - OVERWEIGHT [None]
  - NEUROPATHY PERIPHERAL [None]
  - PANCREATIC DISORDER [None]
  - MUSCULOSKELETAL STIFFNESS [None]
  - INJECTION SITE RASH [None]
  - MEMORY IMPAIRMENT [None]
  - MYOCARDIAL INFARCTION [None]
  - SYNCOPE [None]
  - MULTIPLE SCLEROSIS RELAPSE [None]
  - ABDOMINAL PAIN [None]
  - EXOSTOSIS [None]
  - PARAESTHESIA [None]
  - BACK PAIN [None]
  - DYSKINESIA [None]
  - VOMITING [None]
  - MALNUTRITION [None]
  - HYPOAESTHESIA [None]
  - HYPERAESTHESIA [None]
  - PAIN IN EXTREMITY [None]
  - SENSORY DISTURBANCE [None]
  - VITAMIN B COMPLEX DEFICIENCY [None]
  - DIZZINESS [None]
  - PAIN [None]
  - SENSATION OF HEAVINESS [None]
  - DEPRESSED MOOD [None]
  - INFLUENZA [None]
  - DYSPNOEA [None]
  - INJECTION SITE MASS [None]
  - DIARRHOEA [None]
  - FATIGUE [None]
  - MOBILITY DECREASED [None]
  - TONGUE DISORDER [None]
  - HEADACHE [None]
  - CARDIAC FAILURE [None]
  - VITAMIN D ABNORMAL [None]
